FAERS Safety Report 12388618 (Version 13)
Quarter: 2022Q1

REPORT INFORMATION
  Report Type: Spontaneous
  Country: US (occurrence: US)
  Receive Date: 20160520
  Receipt Date: 20220107
  Transmission Date: 20220423
  Serious: Yes (Hospitalization)
  Sender: FDA-Public Use
  Company Number: US-PFIZER INC-2016254706

PATIENT
  Age: 63 Year
  Sex: Male
  Weight: 99.79 kg

DRUGS (8)
  1. LYRICA [Suspect]
     Active Substance: PREGABALIN
     Indication: Back disorder
     Dosage: 200 MG, 3X/DAY (3 PER DAY 200 MG)
     Route: 048
     Dates: start: 201504, end: 20160623
  2. LYRICA [Suspect]
     Active Substance: PREGABALIN
     Indication: Neuropathy peripheral
     Dosage: 200 MG, 3X/DAY
     Route: 048
  3. LYRICA [Suspect]
     Active Substance: PREGABALIN
     Indication: Neuralgia
     Dosage: 200 MG, TWICE A DAY
     Route: 048
     Dates: start: 201809
  4. LYRICA [Suspect]
     Active Substance: PREGABALIN
     Indication: Spinal cord injury
     Dosage: 200 MG, THREE A DAY
     Route: 048
  5. LEVOTHYROXINE SODIUM [Concomitant]
     Active Substance: LEVOTHYROXINE SODIUM
     Indication: Thyroid hormone replacement therapy
     Dosage: 200 UG, DAILY
     Route: 048
     Dates: start: 20160811
  6. MOBIC [Concomitant]
     Active Substance: MELOXICAM
     Indication: Pain
     Dosage: 150 MG, DAILY (WITH FOOD)
     Route: 048
     Dates: start: 20160811
  7. METHOCARBAMOL [Concomitant]
     Active Substance: METHOCARBAMOL
     Dosage: 750 MG, 2X/DAY
     Route: 048
     Dates: start: 20160616
  8. TRAMADOL HCL [Concomitant]
     Active Substance: TRAMADOL HYDROCHLORIDE
     Dosage: 50 MG, AS NEEDED (THREE TIMES DAILY AS NEEDED FOR 30 DAYS)
     Route: 048
     Dates: start: 20161020

REACTIONS (6)
  - Therapeutic product effect incomplete [Unknown]
  - Intentional product misuse [Unknown]
  - Intentional product use issue [Unknown]
  - Weight increased [Unknown]
  - Concussion [Unknown]
  - Memory impairment [Unknown]

NARRATIVE: CASE EVENT DATE: 20160509
